FAERS Safety Report 4680454-6 (Version None)
Quarter: 2005Q2

REPORT INFORMATION
  Report Type: 
  Country: None (occurrence: None)
  Receive Date: 20050602
  Receipt Date: 20030925
  Transmission Date: 20051028
  Serious: Yes (Life-Threatening, Hospitalization)
  Sender: FDA-Public Use
  Company Number: US-MERCK-0309USA02718

PATIENT
  Age: 52 Year
  Sex: Male

DRUGS (3)
  1. PROSCAR [Suspect]
     Indication: PROSTATIC DISORDER
     Route: 048
     Dates: start: 20010101
  2. [THERAPY UNSPECIFIED] [Concomitant]
     Route: 065
  3. PRINIVIL [Suspect]
     Route: 048
     Dates: start: 20030801, end: 20030901

REACTIONS (12)
  - ACTIVITIES OF DAILY LIVING IMPAIRED [None]
  - BALANCE DISORDER [None]
  - BLOOD PRESSURE DECREASED [None]
  - BLOOD PRESSURE FLUCTUATION [None]
  - CIRCULATORY COLLAPSE [None]
  - DIZZINESS [None]
  - DRUG DISPENSING ERROR [None]
  - FALL [None]
  - HYPOTENSION [None]
  - MEDICATION ERROR [None]
  - STRESS [None]
  - WRONG DRUG ADMINISTERED [None]
